FAERS Safety Report 8472657-X (Version None)
Quarter: 2012Q2

REPORT INFORMATION
  Report Type: 
  Country: None (occurrence: None)
  Receive Date: 20120627
  Receipt Date: 20120517
  Transmission Date: 20120825
  Serious: No
  Sender: FDA-Public Use
  Company Number: US-AMGEN-USASP2012031557

PATIENT
  Age: 46 Year
  Sex: Female
  Weight: 56.236 kg

DRUGS (2)
  1. ANTIDEPRESSANTS [Concomitant]
     Indication: ANTIDEPRESSANT THERAPY
  2. PROCRIT [Suspect]
     Indication: HEPATITIS C
     Dosage: 40000 IU, UNK
     Route: 058
     Dates: start: 20120513

REACTIONS (1)
  - DRUG DOSE OMISSION [None]
